FAERS Safety Report 18755196 (Version 1)
Quarter: 2021Q1

REPORT INFORMATION
  Report Type: Spontaneous
  Country: US (occurrence: US)
  Receive Date: 20210116
  Receipt Date: 20210116
  Transmission Date: 20210419
  Serious: Yes (Hospitalization, Other)
  Sender: FDA-Public Use
  Company Number: None

PATIENT
  Age: 27 Year
  Sex: Female
  Weight: 72.57 kg

DRUGS (1)
  1. MIRENA [Suspect]
     Active Substance: LEVONORGESTREL
     Indication: CONTRACEPTION

REACTIONS (7)
  - Anger [None]
  - Abortion induced [None]
  - Mood swings [None]
  - Headache [None]
  - Unintended pregnancy [None]
  - Pregnancy with contraceptive device [None]
  - Embedded device [None]

NARRATIVE: CASE EVENT DATE: 20190428
